FAERS Safety Report 19195943 (Version 1)
Quarter: 2021Q2

REPORT INFORMATION
  Report Type: Spontaneous
  Country: DE (occurrence: DE)
  Receive Date: 20210429
  Receipt Date: 20210429
  Transmission Date: 20210717
  Serious: Yes (Hospitalization)
  Sender: FDA-Public Use
  Company Number: DE-TEVA-2021-DE-1905660

PATIENT
  Age: 71 Year
  Sex: Female

DRUGS (19)
  1. ACETYLSALICYLIC ACID [Interacting]
     Active Substance: ASPIRIN
     Dosage: 100 MILLIGRAM DAILY; 0?1?0?0
     Route: 048
  2. EBRANTIL [Concomitant]
     Active Substance: URAPIDIL
     Dosage: 180 MILLIGRAM DAILY; 1?0?1?0
     Route: 048
  3. BISOPROLOL [Concomitant]
     Active Substance: BISOPROLOL
     Dosage: 5 MILLIGRAM DAILY; 1?0?1?0
     Route: 048
  4. SPASMOLYT 15MG [Concomitant]
     Dosage: 30 MILLIGRAM DAILY; 1?0?0?1
     Route: 048
  5. CITALOPRAM [Interacting]
     Active Substance: CITALOPRAM HYDROBROMIDE
     Dosage: 10 MILLIGRAM DAILY; 1?0?0?0
     Route: 048
  6. AMLODIPIN [Concomitant]
     Active Substance: AMLODIPINE BESYLATE
     Dosage: 10 MILLIGRAM DAILY; 1?0?1?0
     Route: 048
  7. ATORVASTATIN [Concomitant]
     Active Substance: ATORVASTATIN
     Dosage: 40 MILLIGRAM DAILY;  0?0?1?0
     Route: 048
  8. PANTOPRAZOL [Concomitant]
     Active Substance: PANTOPRAZOLE SODIUM
     Dosage: 80 MILLIGRAM DAILY; 1?0?1?0
     Route: 048
  9. MCP [Concomitant]
     Active Substance: METOCLOPRAMIDE HYDROCHLORIDE
     Dosage: 30 MILLIGRAM DAILY; 1?1?1?0
     Route: 048
  10. FUROSEMID [Interacting]
     Active Substance: FUROSEMIDE
     Dosage: 40 MG, 2?1?0?0
     Route: 048
  11. MOXONIDIN [Concomitant]
     Active Substance: MOXONIDINE
     Dosage: .6 MILLIGRAM DAILY; 1?0?1?0
     Route: 048
  12. LANTUS100EINHEITEN/ML SOLOSTAR 3ML [Concomitant]
     Dosage: 14 IU (INTERNATIONAL UNIT) DAILY; 0?0?1?0
     Route: 058
  13. BACLOFEN. [Concomitant]
     Active Substance: BACLOFEN
     Dosage: 1 DOSAGE FORMS DAILY; 10 MG, 0.5?0?0.5?0
     Route: 048
  14. SPIRONOLACTON [Suspect]
     Active Substance: SPIRONOLACTONE
     Dosage: 12.5 MILLIGRAM DAILY; 0?1?0?0
     Route: 048
  15. DOMINAL FORTE 80MG [Concomitant]
     Active Substance: PROTHIPENDYL HYDROCHLORIDE
     Dosage: 80 MILLIGRAM DAILY; 0?0?0?1
     Route: 048
  16. URO?TABLINEN [Concomitant]
     Active Substance: NITROFURANTOIN
     Dosage: 1 DOSAGE FORMS DAILY; 0?0?1?0
     Route: 048
  17. RAMIPRIL. [Concomitant]
     Active Substance: RAMIPRIL
     Dosage: 10 MILLIGRAM DAILY; 1?0?0?1
     Route: 048
  18. RISPERIDON [Concomitant]
     Active Substance: RISPERIDONE
     Dosage: 1 MILLIGRAM DAILY; 1?0?1?0
     Route: 048
  19. MIRTAZAPIN [Suspect]
     Active Substance: MIRTAZAPINE
     Dosage: .5 DOSAGE FORMS DAILY; 15 MG, 0?0?0.5?0
     Route: 048

REACTIONS (4)
  - Haematemesis [Unknown]
  - Labelled drug-drug interaction medication error [Unknown]
  - General physical health deterioration [Unknown]
  - Renal impairment [Unknown]
